FAERS Safety Report 8508841 (Version 2)
Quarter: 2014Q2

REPORT INFORMATION
  Report Type: Spontaneous
  Country: US (occurrence: US)
  Receive Date: 20120412
  Receipt Date: 20140617
  Transmission Date: 20141212
  Serious: Yes (Hospitalization)
  Sender: FDA-Public Use
  Company Number: US-ASTRAZENECA-2011SE39035

PATIENT
  Age: 62 Year
  Sex: Female
  Weight: 60.8 kg

DRUGS (7)
  1. NEXIUM [Suspect]
     Indication: DYSPEPSIA
     Route: 048
  2. NEXIUM [Suspect]
     Indication: GASTROOESOPHAGEAL REFLUX DISEASE
     Route: 048
  3. NEXIUM [Suspect]
     Indication: DYSPEPSIA
     Route: 048
  4. NEXIUM [Suspect]
     Indication: GASTROOESOPHAGEAL REFLUX DISEASE
     Route: 048
  5. PROTONIX [Concomitant]
  6. TUMS [Concomitant]
  7. OTHER MEDICATIONS [Concomitant]

REACTIONS (9)
  - Influenza [Recovered/Resolved]
  - Gastric disorder [Unknown]
  - Dysphagia [Unknown]
  - Laryngitis [Not Recovered/Not Resolved]
  - Cough [Unknown]
  - Feeling abnormal [Unknown]
  - Seasonal allergy [Unknown]
  - Intentional product misuse [Unknown]
  - Drug dose omission [Unknown]
